FAERS Safety Report 5296728-4 (Version None)
Quarter: 2007Q2

REPORT INFORMATION
  Report Type: 
  Country: None (occurrence: None)
  Receive Date: 20070413
  Receipt Date: 20070402
  Transmission Date: 20071010
  Serious: Yes (Hospitalization)
  Sender: FDA-Public Use
  Company Number: US-PFIZER INC-2007025701

PATIENT
  Sex: Male
  Weight: 73.5 kg

DRUGS (1)
  1. SU-011,248 [Suspect]
     Indication: GASTROINTESTINAL STROMAL TUMOUR
     Route: 048

REACTIONS (2)
  - GAIT DISTURBANCE [None]
  - HYPOGLYCAEMIA [None]
